FAERS Safety Report 21390443 (Version 1)
Quarter: 2022Q3

REPORT INFORMATION
  Report Type: Spontaneous
  Country: US (occurrence: None)
  Receive Date: 20220929
  Receipt Date: 20220929
  Transmission Date: 20221026
  Serious: Yes (Other)
  Sender: FDA-Public Use
  Company Number: US-ROCHE-3188469

PATIENT
  Sex: Female
  Weight: 52.210 kg

DRUGS (1)
  1. PHESGO [Suspect]
     Active Substance: HYALURONIDASE-ZZXF\PERTUZUMAB\TRASTUZUMAB
     Indication: Breast cancer
     Route: 058
     Dates: start: 202106

REACTIONS (4)
  - Gait disturbance [Unknown]
  - Cerebral disorder [Unknown]
  - Brain oedema [Unknown]
  - General physical health deterioration [Unknown]
